FAERS Safety Report 8053133-5 (Version None)
Quarter: 2011Q4

REPORT INFORMATION
  Report Type: 
  Country: None (occurrence: None)
  Receive Date: 20111213
  Receipt Date: 20110412
  Transmission Date: 20120403
  Serious: No
  Sender: FDA-Public Use
  Company Number: 2011SP016517

PATIENT
  Sex: Female

DRUGS (6)
  1. BENZTROPINE MESYLATE [Concomitant]
  2. SAPHRIS [Suspect]
     Indication: SCHIZOAFFECTIVE DISORDER
     Dosage: 5 MG;HS;SL ; 10 MG;SL
     Route: 060
     Dates: end: 20110511
  3. SAPHRIS [Suspect]
     Indication: PSYCHOTIC DISORDER
     Dosage: 5 MG;HS;SL ; 10 MG;SL
     Route: 060
     Dates: end: 20110511
  4. SAPHRIS [Suspect]
     Indication: SCHIZOAFFECTIVE DISORDER
     Dosage: 5 MG;HS;SL ; 10 MG;SL
     Route: 060
     Dates: start: 20110411
  5. SAPHRIS [Suspect]
     Indication: PSYCHOTIC DISORDER
     Dosage: 5 MG;HS;SL ; 10 MG;SL
     Route: 060
     Dates: start: 20110411
  6. PERPHENAZINE [Concomitant]

REACTIONS (4)
  - ARTHRALGIA [None]
  - INAPPROPRIATE SCHEDULE OF DRUG ADMINISTRATION [None]
  - UNDERDOSE [None]
  - SOMNOLENCE [None]
